FAERS Safety Report 15861427 (Version 2)
Quarter: 2019Q3

REPORT INFORMATION
  Report Type: Spontaneous
  Country: CN (occurrence: CN)
  Receive Date: 20190124
  Receipt Date: 20190722
  Transmission Date: 20191004
  Serious: Yes (Other)
  Sender: FDA-Public Use
  Company Number: CN-SUN PHARMACEUTICAL INDUSTRIES LTD-2019R1-196812

PATIENT
  Age: 23 Year
  Sex: Female

DRUGS (2)
  1. GEMCITABINE. [Suspect]
     Active Substance: GEMCITABINE
     Indication: CHOLANGIOCARCINOMA
     Dosage: 6 CYCLES (1000 MG/M2 ON DAYS 1 AND 8)
     Route: 042
  2. CAPECITABINE. [Suspect]
     Active Substance: CAPECITABINE
     Indication: CHOLANGIOCARCINOMA
     Dosage: 6 CYCLES (1.5 G BID) DAY1-14
     Route: 048

REACTIONS (5)
  - Anaemia [Recovering/Resolving]
  - Bone marrow failure [Recovering/Resolving]
  - Vomiting [Recovering/Resolving]
  - Alanine aminotransferase increased [Unknown]
  - Disease progression [Unknown]
